FAERS Safety Report 12761586 (Version 3)
Quarter: 2016Q4

REPORT INFORMATION
  Report Type: Spontaneous
  Country: DE (occurrence: DE)
  Receive Date: 20160920
  Receipt Date: 20161108
  Transmission Date: 20170207
  Serious: Yes (Hospitalization, Other)
  Sender: FDA-Public Use
  Company Number: DE-ROCHE-1832188

PATIENT
  Age: 15 Year
  Sex: Female
  Weight: 33 kg

DRUGS (12)
  1. ROACTEMRA [Suspect]
     Active Substance: TOCILIZUMAB
     Indication: SYSTEMIC SCLERODERMA
     Route: 042
     Dates: start: 20160808
  2. BOSENTAN. [Concomitant]
     Active Substance: BOSENTAN
     Indication: URETHRAL SYNDROME
  3. OMEPRAZOL [Concomitant]
     Active Substance: OMEPRAZOLE
     Indication: URETHRITIS
     Route: 048
  4. OMEPRAZOL [Concomitant]
     Active Substance: OMEPRAZOLE
     Indication: URETHRAL SYNDROME
  5. DEKRISTOL [Concomitant]
     Active Substance: CHOLECALCIFEROL
     Indication: URETHRITIS
     Route: 048
  6. METHOTREXATE. [Concomitant]
     Active Substance: METHOTREXATE
     Indication: URETHRITIS
     Route: 048
  7. METHOTREXATE. [Concomitant]
     Active Substance: METHOTREXATE
     Indication: URETHRAL SYNDROME
  8. ASPIRIN. [Concomitant]
     Active Substance: ASPIRIN
     Indication: URETHRAL SYNDROME
  9. FOLSAN [Concomitant]
     Active Substance: FOLIC ACID
     Route: 048
  10. BOSENTAN. [Concomitant]
     Active Substance: BOSENTAN
     Indication: URETHRITIS
     Route: 048
  11. DEKRISTOL [Concomitant]
     Active Substance: CHOLECALCIFEROL
     Indication: URETHRAL SYNDROME
  12. ASPIRIN. [Concomitant]
     Active Substance: ASPIRIN
     Indication: URETHRITIS
     Route: 048

REACTIONS (2)
  - Sudden hearing loss [Recovered/Resolved with Sequelae]
  - Off label use [Unknown]

NARRATIVE: CASE EVENT DATE: 20160825
